FAERS Safety Report 17467213 (Version 1)
Quarter: 2020Q1

REPORT INFORMATION
  Report Type: Spontaneous
  Country: DE (occurrence: DE)
  Receive Date: 20200227
  Receipt Date: 20200227
  Transmission Date: 20200409
  Serious: Yes (Death, Other)
  Sender: FDA-Public Use
  Company Number: NVSC2020DE052805

PATIENT
  Age: 69 Year
  Sex: Female

DRUGS (7)
  1. HYDROCORTISONE. [Suspect]
     Active Substance: HYDROCORTISONE
     Indication: IMMUNOSUPPRESSANT DRUG THERAPY
     Dosage: UNK
     Route: 042
  2. CYCLOPHOSPHAMIDE. [Suspect]
     Active Substance: CYCLOPHOSPHAMIDE
     Indication: IMMUNOSUPPRESSANT DRUG THERAPY
     Dosage: SHE WAS LATER READMITTED FOR ANOTHER COURSE OF CYCLOPHOSPHAMIDE
     Route: 065
  3. METHYLPREDNISOLONE. [Suspect]
     Active Substance: METHYLPREDNISOLONE
     Indication: IMMUNOSUPPRESSANT DRUG THERAPY
     Dosage: 1 G, QD
     Route: 042
  4. TACROLIMUS. [Suspect]
     Active Substance: TACROLIMUS
     Indication: IMMUNOSUPPRESSANT DRUG THERAPY
     Dosage: INITIAL DOSAGE NOT STATED; HOWEVER, SHE HAD BEEN RECEIVING ORAL MYCOPHENOLATE MOFETIL AT 1.5 MG/...
     Route: 048
  5. RITUXIMAB. [Suspect]
     Active Substance: RITUXIMAB
     Indication: IMMUNOSUPPRESSANT DRUG THERAPY
     Dosage: TWO APPLICATIONS OF RITUXIMAB 2 X 1000MG WITHIN 14 DAYS; SHE WAS LATER READMITTED FOR ANOTHER COU...
     Route: 065
  6. MYCOPHENOLATE MOFETIL. [Suspect]
     Active Substance: MYCOPHENOLATE MOFETIL
     Indication: IMMUNOSUPPRESSANT DRUG THERAPY
     Dosage: INITIAL DOSAGE NOT STATED, HOWEVER, SHE HAD BEEN RECEIVING ORAL MYCOPHENOLATE MOFETIL AT 1000 MG/...
     Route: 048
  7. METHYLPREDNISOLONE. [Suspect]
     Active Substance: METHYLPREDNISOLONE
     Dosage: 1 G, QD
     Route: 042

REACTIONS (9)
  - Epilepsy [Fatal]
  - Central nervous system viral infection [Fatal]
  - Epstein-Barr virus infection [Fatal]
  - Gait inability [Fatal]
  - Encephalitis autoimmune [Fatal]
  - Sepsis [Fatal]
  - Apallic syndrome [Fatal]
  - Cachexia [Fatal]
  - Altered state of consciousness [Fatal]
